FAERS Safety Report 24444865 (Version 2)
Quarter: 2024Q4

REPORT INFORMATION
  Report Type: Report from Study
  Country: US (occurrence: US)
  Receive Date: 20241016
  Receipt Date: 20241017
  Transmission Date: 20250115
  Serious: No
  Sender: ROCHE
  Company Number: US-ROCHE-2900923

PATIENT
  Age: 54 Year
  Sex: Female
  Weight: 85.28 kg

DRUGS (9)
  1. RITUXAN [Suspect]
     Active Substance: RITUXIMAB
     Indication: Retinopathy proliferative
     Dosage: WEEKLY FOR 8WEEKS THEN MONTHLY FOR 4 MONTHS
     Route: 042
  2. RITUXAN [Suspect]
     Active Substance: RITUXIMAB
     Indication: Retinal disorder
     Dosage: INFUSE 720MG INTRAVENOUSLY EVERY MONTH
     Route: 042
  3. RITUXAN [Suspect]
     Active Substance: RITUXIMAB
     Indication: Noninfective chorioretinitis
     Dosage: INFUSE 720MG INTRAVENOUSLY EVERY MONTH
     Route: 042
  4. ADVIL MIGRAINE [Concomitant]
     Active Substance: IBUPROFEN
  5. XANAX [Concomitant]
     Active Substance: ALPRAZOLAM
  6. FOLIC ACID [Concomitant]
     Active Substance: FOLIC ACID
  7. PROTONIX [Concomitant]
     Active Substance: PANTOPRAZOLE SODIUM
  8. LORTAB [Concomitant]
     Active Substance: ACETAMINOPHEN\HYDROCODONE BITARTRATE
  9. ACTHAR [Concomitant]
     Active Substance: CORTICOTROPIN

REACTIONS (2)
  - Off label use [Unknown]
  - No adverse event [Unknown]
